FAERS Safety Report 9087999 (Version 2)
Quarter: 2013Q1

REPORT INFORMATION
  Report Type: Spontaneous
  Country: US (occurrence: US)
  Receive Date: 20130201
  Receipt Date: 20130220
  Transmission Date: 20140127
  Serious: Yes (Other)
  Sender: FDA-Public Use
  Company Number: US-PFIZER INC-2013039557

PATIENT
  Age: 60 Year
  Sex: Female
  Weight: 79.37 kg

DRUGS (2)
  1. REVATIO [Suspect]
     Indication: PULMONARY HYPERTENSION
     Dosage: 20 MG, 3X/DAY
     Route: 048
     Dates: start: 201210
  2. TRACLEER [Concomitant]
     Indication: PULMONARY HYPERTENSION
     Dosage: 125 MG, 2X/DAY

REACTIONS (1)
  - Vaginal haemorrhage [Unknown]
